FAERS Safety Report 15412849 (Version 2)
Quarter: 2018Q4

REPORT INFORMATION
  Report Type: Spontaneous
  Country: US (occurrence: US)
  Receive Date: 20180921
  Receipt Date: 20181018
  Transmission Date: 20190204
  Serious: No
  Sender: FDA-Public Use
  Company Number: US-SHIRE-US201836247

PATIENT
  Age: 75 Year
  Sex: Female

DRUGS (1)
  1. XIIDRA [Suspect]
     Active Substance: LIFITEGRAST
     Indication: PRODUCT USED FOR UNKNOWN INDICATION
     Dosage: UNK
     Route: 047
     Dates: start: 20180906

REACTIONS (4)
  - Instillation site pain [Unknown]
  - Instillation site reaction [Unknown]
  - Vision blurred [Unknown]
  - Product quality issue [Unknown]

NARRATIVE: CASE EVENT DATE: 20180906
